FAERS Safety Report 5863288-6 (Version None)
Quarter: 2008Q3

REPORT INFORMATION
  Report Type: 
  Country: None (occurrence: None)
  Receive Date: 20080828
  Receipt Date: 20080819
  Transmission Date: 20090109
  Serious: Yes (Hospitalization)
  Sender: FDA-Public Use
  Company Number: JP-PFIZER INC-2008049304

PATIENT
  Sex: Male

DRUGS (11)
  1. MIGLITOL TABLET [Suspect]
     Indication: DIABETES MELLITUS
     Dosage: DAILY DOSE:150MG
     Route: 048
     Dates: start: 20071228, end: 20080508
  2. CHLORMADINONE ACETATE TAB [Suspect]
     Indication: BENIGN PROSTATIC HYPERPLASIA
     Dosage: DAILY DOSE:50MG
     Route: 048
     Dates: start: 20080214, end: 20080508
  3. BANAN [Suspect]
     Indication: URINARY TRACT INFECTION
     Dosage: DAILY DOSE:300MG
     Route: 048
     Dates: start: 20080305, end: 20080310
  4. ANTIBIOTICS [Suspect]
     Indication: URINARY TRACT INFECTION
  5. METFORMIN HCL [Concomitant]
     Indication: DIABETES MELLITUS
     Route: 048
  6. EUGLUCON [Concomitant]
     Indication: DIABETES MELLITUS
     Route: 048
  7. FAMOTIDINE [Concomitant]
     Indication: GASTRITIS
     Route: 048
     Dates: start: 20070416, end: 20080508
  8. ASPIRIN [Concomitant]
     Indication: CAROTID ARTERY STENOSIS
     Route: 048
     Dates: start: 20070709, end: 20080508
  9. FLIVAS [Concomitant]
     Indication: BENIGN PROSTATIC HYPERPLASIA
     Dates: start: 20030101
  10. TAMSULOSIN HCL [Concomitant]
  11. CRAVIT [Concomitant]
     Indication: GASTROENTERITIS
     Dosage: DAILY DOSE:300MG
     Route: 048
     Dates: start: 20080229, end: 20080302

REACTIONS (10)
  - ALANINE AMINOTRANSFERASE INCREASED [None]
  - ASPARTATE AMINOTRANSFERASE INCREASED [None]
  - BLOOD ALKALINE PHOSPHATASE INCREASED [None]
  - DEPRESSED MOOD [None]
  - DIARRHOEA [None]
  - JAUNDICE [None]
  - LIVER DISORDER [None]
  - PRURITUS [None]
  - URINARY TRACT INFECTION [None]
  - VOMITING [None]
